FAERS Safety Report 10330189 (Version 7)
Quarter: 2015Q2

REPORT INFORMATION
  Report Type: Report from Study
  Country: US (occurrence: US)
  Receive Date: 20140721
  Receipt Date: 20150429
  Transmission Date: 20150821
  Serious: Yes (Hospitalization, Other)
  Sender: FDA-Public Use
  Company Number: US-ACTELION-A-US2013-80684

PATIENT
  Age: 54 Year
  Sex: Female

DRUGS (6)
  1. ADCIRCA [Concomitant]
     Active Substance: TADALAFIL
  2. COUMADIN [Concomitant]
     Active Substance: WARFARIN SODIUM
     Dosage: UNK
  3. CIALIS [Concomitant]
     Active Substance: TADALAFIL
  4. TRACLEER [Suspect]
     Active Substance: BOSENTAN\BOSENTAN MONOHYDRATE
     Indication: PULMONARY ARTERIAL HYPERTENSION
     Dosage: UNK
     Route: 048
  5. TRACLEER [Suspect]
     Active Substance: BOSENTAN\BOSENTAN MONOHYDRATE
     Dosage: UNK
     Route: 048
  6. OXYGEN. [Concomitant]
     Active Substance: OXYGEN
     Dosage: 3-4 L, PER MIN

REACTIONS (27)
  - Dyspnoea [Unknown]
  - Palpitations [Unknown]
  - Sinusitis [Unknown]
  - Presyncope [Unknown]
  - Oedema [Unknown]
  - Chest discomfort [Unknown]
  - Chest pain [Unknown]
  - Condition aggravated [Unknown]
  - Upper respiratory tract infection [Unknown]
  - Dizziness [Unknown]
  - Weight increased [Unknown]
  - Syncope [Unknown]
  - Frustration [Unknown]
  - Cyanosis [Unknown]
  - Right ventricular failure [Recovering/Resolving]
  - No therapeutic response [Unknown]
  - Pulmonary arterial hypertension [Unknown]
  - Continuous positive airway pressure [Unknown]
  - Fatigue [Unknown]
  - Cardiac disorder [Unknown]
  - Disturbance in attention [Unknown]
  - Blood potassium decreased [Unknown]
  - Cough [Unknown]
  - Loss of consciousness [Unknown]
  - Malaise [Unknown]
  - Interstitial lung disease [Unknown]
  - Drug dose omission [Unknown]

NARRATIVE: CASE EVENT DATE: 201406
